FAERS Safety Report 21284216 (Version 1)
Quarter: 2022Q3

REPORT INFORMATION
  Report Type: Report from Study
  Country: BR (occurrence: BR)
  Receive Date: 20220902
  Receipt Date: 20220902
  Transmission Date: 20221026
  Serious: Yes (Hospitalization)
  Sender: FDA-Public Use
  Company Number: BR-BIOGEN-2021BI00986972

PATIENT
  Sex: Female
  Weight: 62 kg

DRUGS (8)
  1. TECFIDERA [Suspect]
     Active Substance: DIMETHYL FUMARATE
     Indication: Multiple sclerosis
     Route: 050
     Dates: start: 20210224
  2. TECFIDERA [Suspect]
     Active Substance: DIMETHYL FUMARATE
     Route: 050
     Dates: end: 202104
  3. TECFIDERA [Suspect]
     Active Substance: DIMETHYL FUMARATE
     Route: 050
     Dates: start: 2021, end: 2021
  4. ONDANSETRON [Concomitant]
     Active Substance: ONDANSETRON
     Indication: Nausea
     Route: 050
  5. IVERMECTIN [Concomitant]
     Active Substance: IVERMECTIN
     Route: 050
  6. ESTRADIOL VALERATE\NORETHINDRONE ENANTHATE [Concomitant]
     Active Substance: ESTRADIOL VALERATE\NORETHINDRONE ENANTHATE
     Indication: Contraception
     Route: 050
     Dates: start: 2018
  7. ESTRADIOL VALERATE\NORETHINDRONE ENANTHATE [Concomitant]
     Active Substance: ESTRADIOL VALERATE\NORETHINDRONE ENANTHATE
     Route: 050
  8. ESTRADIOL VALERATE\NORETHINDRONE ENANTHATE [Concomitant]
     Active Substance: ESTRADIOL VALERATE\NORETHINDRONE ENANTHATE
     Route: 050
     Dates: start: 2019

REACTIONS (9)
  - Multiple sclerosis relapse [Recovered/Resolved]
  - Vitamin D decreased [Not Recovered/Not Resolved]
  - Vitamin B complex deficiency [Not Recovered/Not Resolved]
  - Body temperature increased [Recovered/Resolved]
  - Headache [Not Recovered/Not Resolved]
  - Abdominal pain upper [Recovered/Resolved]
  - Hot flush [Recovered/Resolved]
  - Nausea [Recovered/Resolved]
  - Pruritus [Not Recovered/Not Resolved]

NARRATIVE: CASE EVENT DATE: 20210101
